FAERS Safety Report 8170069-X (Version None)
Quarter: 2012Q1

REPORT INFORMATION
  Report Type: 
  Country: None (occurrence: None)
  Receive Date: 20120228
  Receipt Date: 20120220
  Transmission Date: 20120608
  Serious: Yes (Other)
  Sender: FDA-Public Use
  Company Number: CZ-TEVA-323627ISR

PATIENT
  Sex: Female

DRUGS (8)
  1. PACLITAXEL [Suspect]
     Dosage: 175 MG/M2 EVERY 3 WEEKS
     Route: 065
     Dates: end: 20071001
  2. PACLITAXEL [Suspect]
     Indication: OVARIAN CANCER
     Dosage: 175 MG/M2 EVERY 3 WEEKS
     Route: 065
     Dates: end: 20071001
  3. PACLITAXEL [Suspect]
     Dosage: 175 MG/M2 EVERY 3 WEEKS
     Route: 065
     Dates: end: 20071001
  4. CARBOPLATIN [Suspect]
     Dosage: AREA UNDER THE CURVE 6 EVERY 3 WEEKS
     Route: 065
     Dates: end: 20071001
  5. CARBOPLATIN [Suspect]
     Dosage: AREA UNDER THE CURVE 6 EVERY 3 WEEKS
     Route: 065
     Dates: end: 20071001
  6. CARBOPLATIN [Suspect]
     Dosage: AREA UNDER THE CURVE 6 EVERY 3 WEEKS
     Route: 065
     Dates: end: 20071001
  7. PACLITAXEL [Suspect]
     Dosage: 175 MG/M2 EVERY 3 WEEKS
     Route: 065
     Dates: end: 20071001
  8. CARBOPLATIN [Suspect]
     Indication: OVARIAN CANCER
     Dosage: AREA UNDER THE CURVE 6 EVERY 3 WEEKS
     Route: 065
     Dates: end: 20071001

REACTIONS (2)
  - PANCYTOPENIA [None]
  - ACUTE MYELOID LEUKAEMIA [None]
